FAERS Safety Report 8474839-X (Version None)
Quarter: 2012Q2

REPORT INFORMATION
  Report Type: 
  Country: None (occurrence: None)
  Receive Date: 20120628
  Receipt Date: 20120619
  Transmission Date: 20120825
  Serious: Yes (Other)
  Sender: FDA-Public Use
  Company Number: KR-BRISTOL-MYERS SQUIBB COMPANY-16720971

PATIENT

DRUGS (1)
  1. BLEOMYCIN SULFATE [Suspect]

REACTIONS (1)
  - CEREBROVASCULAR DISORDER [None]
